FAERS Safety Report 8339777-1 (Version None)
Quarter: 2012Q2

REPORT INFORMATION
  Report Type: 
  Country: None (occurrence: None)
  Receive Date: 20120507
  Receipt Date: 20120423
  Transmission Date: 20120825
  Serious: Yes (Other)
  Sender: FDA-Public Use
  Company Number: US-NAPPMUNDI-DEU-2012-0008869

PATIENT
  Age: 57 Year
  Sex: Male

DRUGS (4)
  1. HYDROMORPHONE HCL [Suspect]
     Dosage: 14 MG, SEE TEXT
     Route: 042
  2. HYDROMORPHONE HCL [Suspect]
     Dosage: 0.4 MG, SEE TEXT
     Route: 042
  3. HYDROMORPHONE HCL [Suspect]
     Indication: CANCER PAIN
     Dosage: 10 MG, SEE TEXT
     Route: 042
  4. HYDROMORPHONE HCL [Suspect]
     Dosage: 20 MG, SEE TEXT
     Route: 042

REACTIONS (6)
  - HALLUCINATION, VISUAL [None]
  - MYOCLONUS [None]
  - MUSCLE SPASMS [None]
  - NEUROTOXICITY [None]
  - DELIRIUM [None]
  - CONFUSIONAL STATE [None]
